FAERS Safety Report 8847897 (Version 1)
Quarter: 2012Q4

REPORT INFORMATION
  Report Type: 
  Country: US (occurrence: US)
  Receive Date: 20121018
  Receipt Date: 20121018
  Transmission Date: 20130627
  Serious: No
  Sender: FDA-Public Use
  Company Number: US-BAYER-2012-108311

PATIENT
  Sex: Female

DRUGS (1)
  1. GADAVIST [Suspect]
     Dosage: UNK
     Dates: start: 20121012, end: 20121012

REACTIONS (1)
  - Vomiting [None]
